FAERS Safety Report 23094174 (Version 2)
Quarter: 2023Q4

REPORT INFORMATION
  Report Type: Report from Study
  Country: US (occurrence: US)
  Receive Date: 20231023
  Receipt Date: 20231121
  Transmission Date: 20240109
  Serious: Yes (Hospitalization)
  Sender: FDA-Public Use
  Company Number: US-GILEAD-2023-0647871

PATIENT
  Age: 54 Year
  Sex: Male

DRUGS (2)
  1. EMTRICITABINE\TENOFOVIR [Suspect]
     Active Substance: EMTRICITABINE\TENOFOVIR
     Indication: Prophylaxis against HIV infection
     Dosage: 225 MG, QD
     Route: 048
     Dates: start: 202301, end: 202304
  2. EMTRICITABINE\TENOFOVIR [Suspect]
     Active Substance: EMTRICITABINE\TENOFOVIR
     Dosage: 225 MG, QD
     Route: 048

REACTIONS (2)
  - Swelling [Recovered/Resolved]
  - Product dose omission issue [Not Recovered/Not Resolved]

NARRATIVE: CASE EVENT DATE: 20230401
